FAERS Safety Report 20170846 (Version 1)
Quarter: 2021Q4

REPORT INFORMATION
  Report Type: Spontaneous
  Country: CA (occurrence: CA)
  Receive Date: 20211210
  Receipt Date: 20211210
  Transmission Date: 20220303
  Serious: Yes (Other)
  Sender: FDA-Public Use
  Company Number: CA-SA-SAC20211208001019

PATIENT
  Sex: Female

DRUGS (52)
  1. METRONIDAZOLE [Suspect]
     Active Substance: METRONIDAZOLE
     Indication: Product used for unknown indication
     Dosage: UNKN
  2. GRAMICIDIN\NEOMYCIN SULFATE\POLYMYXIN B SULFATE [Suspect]
     Active Substance: GRAMICIDIN\NEOMYCIN SULFATE\POLYMYXIN B SULFATE
     Indication: Product used for unknown indication
     Dosage: UNKN
  3. BUDESONIDE [Suspect]
     Active Substance: BUDESONIDE
  4. SODIUM CHLORIDE [Suspect]
     Active Substance: SODIUM CHLORIDE
  5. ACETAMINOPHEN [Suspect]
     Active Substance: ACETAMINOPHEN
  6. ALPRAZOLAM [Suspect]
     Active Substance: ALPRAZOLAM
  7. AMOXICILLIN TRIHYDRATE [Suspect]
     Active Substance: AMOXICILLIN
  8. HYDROCHLOROTHIAZIDE [Suspect]
     Active Substance: HYDROCHLOROTHIAZIDE
  9. ATORVASTATIN CALCIUM [Suspect]
     Active Substance: ATORVASTATIN CALCIUM
  10. ATROPINE SULFATE\DIPHENOXYLATE HYDROCHLORIDE [Suspect]
     Active Substance: ATROPINE SULFATE\DIPHENOXYLATE HYDROCHLORIDE
  11. AZITHROMYCIN DIHYDRATE [Suspect]
     Active Substance: AZITHROMYCIN DIHYDRATE
  12. BETAMETHASONE [Suspect]
     Active Substance: BETAMETHASONE
  13. BETAMETHASONE DIPROPIONATE [Suspect]
     Active Substance: BETAMETHASONE DIPROPIONATE
  14. BISACODYL [Suspect]
     Active Substance: BISACODYL
  15. CALCIUM CARBONATE\CHOLECALCIFEROL [Suspect]
     Active Substance: CALCIUM CARBONATE\CHOLECALCIFEROL
  16. CETIRIZINE [Suspect]
     Active Substance: CETIRIZINE HYDROCHLORIDE
  17. CLARITHROMYCIN [Suspect]
     Active Substance: CLARITHROMYCIN
  18. CLOTRIMAZOLE [Suspect]
     Active Substance: CLOTRIMAZOLE
  19. CUPRIC OXIDE [Suspect]
     Active Substance: CUPRIC OXIDE
  20. DESONIDE [Suspect]
     Active Substance: DESONIDE
  21. DILAUDID [Suspect]
     Active Substance: HYDROMORPHONE HYDROCHLORIDE
  22. DIPHENHYDRAMINE HYDROCHLORIDE [Suspect]
     Active Substance: DIPHENHYDRAMINE HYDROCHLORIDE
  23. ENTOCORT [Suspect]
     Active Substance: BUDESONIDE
  24. ERTAPENEM SODIUM [Suspect]
     Active Substance: ERTAPENEM SODIUM
  25. FLOVENT [Suspect]
     Active Substance: FLUTICASONE PROPIONATE
  26. FLUTICASONE FUROATE [Suspect]
     Active Substance: FLUTICASONE FUROATE
  27. GLYCERIN [Suspect]
     Active Substance: GLYCERIN
  28. HUMIRA [Suspect]
     Active Substance: ADALIMUMAB
  29. IMODIUM [Suspect]
     Active Substance: LOPERAMIDE HYDROCHLORIDE
  30. MAGNESIUM SULFATE, UNSPECIFIED\POLYETHYLENE GLYCOL 3350\POTASSIUM CHLO [Suspect]
     Active Substance: MAGNESIUM SULFATE, UNSPECIFIED\POLYETHYLENE GLYCOL 3350\POTASSIUM CHLORIDE\POTASSIUM SULFATE\SODIUM
  31. MAGNESIUM OXIDE [Suspect]
     Active Substance: MAGNESIUM OXIDE
  32. MAGNESIUM SULFATE [Suspect]
     Active Substance: MAGNESIUM SULFATE
  33. MORPHINE SULFATE [Suspect]
     Active Substance: MORPHINE SULFATE
  34. MUPIROCIN [Suspect]
     Active Substance: MUPIROCIN
     Route: 061
  35. NADOLOL [Suspect]
     Active Substance: NADOLOL
  36. NICODERM CQ [Suspect]
     Active Substance: NICOTINE
     Route: 062
  37. NICOTINE [Suspect]
     Active Substance: NICOTINE
     Route: 062
  38. NICOTINE POLACRILEX [Suspect]
     Active Substance: NICOTINE
  39. PANTOPRAZOLE [Suspect]
     Active Substance: PANTOPRAZOLE
  40. PENTASA [Suspect]
     Active Substance: MESALAMINE
  41. PREDNISONE [Suspect]
     Active Substance: PREDNISONE
  42. PREGABALIN [Suspect]
     Active Substance: PREGABALIN
  43. REFRESH TEARS [Suspect]
     Active Substance: CARBOXYMETHYLCELLULOSE SODIUM
     Route: 047
  44. SODIUM BICARBONATE\SODIUM CHLORIDE [Suspect]
     Active Substance: SODIUM BICARBONATE\SODIUM CHLORIDE
     Route: 045
  45. SULFAMETHOXAZOLE\TRIMETHOPRIM [Suspect]
     Active Substance: SULFAMETHOXAZOLE\TRIMETHOPRIM
  46. TRIAMCINOLONE ACETONIDE [Suspect]
     Active Substance: TRIAMCINOLONE ACETONIDE
     Route: 014
  47. VITAMIN D3 [Suspect]
     Active Substance: CHOLECALCIFEROL
  48. XANTOFYL PALMITATE [Suspect]
     Active Substance: XANTOFYL PALMITATE
  49. ZEAXANTHIN [Suspect]
     Active Substance: ZEAXANTHIN
  50. ZINC OXIDE [Suspect]
     Active Substance: ZINC OXIDE
  51. CALCIUM CARBONATE\CHOLECALCIFEROL [Concomitant]
     Active Substance: CALCIUM CARBONATE\CHOLECALCIFEROL
  52. VALSARTAN [Concomitant]
     Active Substance: VALSARTAN

REACTIONS (2)
  - Macular degeneration [Unknown]
  - Drug ineffective [Unknown]
